FAERS Safety Report 14032865 (Version 1)
Quarter: 2017Q4

REPORT INFORMATION
  Report Type: Spontaneous
  Country: US (occurrence: US)
  Receive Date: 20171002
  Receipt Date: 20171002
  Transmission Date: 20180321
  Serious: Yes (Hospitalization, Other)
  Sender: FDA-Public Use
  Company Number: US-TEVA-811041USA

PATIENT
  Age: 67 Year
  Sex: Female

DRUGS (5)
  1. MORPHINE SULFATE. [Suspect]
     Active Substance: MORPHINE SULFATE
     Indication: BACK PAIN
     Dosage: 3.60 MG/DAY; HIGHEST DOSE
     Route: 037
     Dates: start: 2004, end: 20130627
  2. FENTANYL. [Suspect]
     Active Substance: FENTANYL
     Indication: BACK PAIN
     Dosage: 50 MCG/H
     Route: 065
     Dates: start: 2009, end: 2011
  3. FENTANYL. [Suspect]
     Active Substance: FENTANYL
     Indication: BACK PAIN
     Dosage: INCREASING DOSE
     Route: 065
     Dates: start: 2009, end: 2011
  4. HYDROCODONE [Suspect]
     Active Substance: HYDROCODONE
     Indication: BREAKTHROUGH PAIN
     Route: 065
  5. OXYCODONE HYDROCHLORIDE. [Suspect]
     Active Substance: OXYCODONE HYDROCHLORIDE
     Indication: BREAKTHROUGH PAIN
     Route: 065

REACTIONS (6)
  - Pain [Recovering/Resolving]
  - Pneumonia [Unknown]
  - Anxiety [Unknown]
  - Small intestinal obstruction [Unknown]
  - Constipation [Unknown]
  - Respiratory failure [Unknown]
